FAERS Safety Report 4630719-9 (Version None)
Quarter: 2005Q2

REPORT INFORMATION
  Report Type: 
  Country: None (occurrence: None)
  Receive Date: 20050406
  Receipt Date: 20050322
  Transmission Date: 20051028
  Serious: Yes (Hospitalization)
  Sender: FDA-Public Use
  Company Number: WAES 0503DEU00208

PATIENT
  Age: 55 Year
  Sex: Female

DRUGS (5)
  1. VIOXX [Suspect]
     Indication: RHEUMATOID ARTHRITIS
     Dosage: 25 MG DAILY PO
     Route: 048
     Dates: start: 20040224
  2. TAB 0663-BLINDED THERAPY [Suspect]
     Indication: RHEUMATOID ARTHRITIS
     Dosage: PO
     Route: 048
     Dates: start: 20030605, end: 20040212
  3. TAB BLINDED THERAPY [Suspect]
     Indication: RHEUMATOID ARTHRITIS
     Dosage: PO
     Route: 048
     Dates: start: 20030605, end: 20040212
  4. PREDNISOLONE [Concomitant]
  5. SULFASALAZINE [Concomitant]

REACTIONS (4)
  - DYSPEPSIA [None]
  - HEMIPARESIS [None]
  - PSYCHOTIC DISORDER [None]
  - TRANSIENT ISCHAEMIC ATTACK [None]
